FAERS Safety Report 6530236-5 (Version None)
Quarter: 2010Q1

REPORT INFORMATION
  Report Type: 
  Country: None (occurrence: None)
  Receive Date: 20100107
  Receipt Date: 20091228
  Transmission Date: 20100710
  Serious: Yes (Other)
  Sender: FDA-Public Use
  Company Number: US-PFIZER INC-2010000307

PATIENT
  Sex: Female
  Weight: 77.11 kg

DRUGS (4)
  1. LIPITOR [Suspect]
     Indication: BLOOD CHOLESTEROL INCREASED
     Dosage: 40 MG, 1X/DAY
     Route: 048
     Dates: start: 20070101
  2. LIPITOR [Suspect]
     Indication: BLOOD TRIGLYCERIDES INCREASED
  3. ZIAC [Concomitant]
  4. BENICAR [Concomitant]

REACTIONS (6)
  - ARTHRALGIA [None]
  - ARTHRITIS [None]
  - GAIT DISTURBANCE [None]
  - JOINT RANGE OF MOTION DECREASED [None]
  - JOINT SWELLING [None]
  - MUSCULOSKELETAL DISORDER [None]
